FAERS Safety Report 5296783-1 (Version None)
Quarter: 2007Q1

REPORT INFORMATION
  Report Type: 
  Country: None (occurrence: None)
  Receive Date: 20070201
  Receipt Date: 20061107
  Transmission Date: 20070707
  Serious: No
  Sender: FDA-Public Use
  Company Number: 2006PV024766

PATIENT
  Age: 76 Year
  Sex: Female

DRUGS (6)
  1. BYETTA [Suspect]
     Indication: DIABETES MELLITUS NON-INSULIN-DEPENDENT
     Dosage: SEE IMAGE
     Route: 058
     Dates: start: 20060501, end: 20060601
  2. BYETTA [Suspect]
     Indication: DIABETES MELLITUS NON-INSULIN-DEPENDENT
     Dosage: SEE IMAGE
     Route: 058
     Dates: start: 20060801, end: 20061001
  3. BYETTA [Suspect]
     Indication: DIABETES MELLITUS NON-INSULIN-DEPENDENT
     Dosage: SEE IMAGE
     Route: 058
     Dates: start: 20061001, end: 20061105
  4. NOVOLIN 50/50 [Concomitant]
  5. HUMALOG [Concomitant]
  6. METFORMIN [Concomitant]

REACTIONS (9)
  - AGITATION [None]
  - BLOOD GLUCOSE DECREASED [None]
  - FATIGUE [None]
  - FEELING ABNORMAL [None]
  - HYPERHIDROSIS [None]
  - HYPERSOMNIA [None]
  - INJECTION SITE EXTRAVASATION [None]
  - TREMOR [None]
  - VISUAL DISTURBANCE [None]
